FAERS Safety Report 24961881 (Version 2)
Quarter: 2025Q1

REPORT INFORMATION
  Report Type: Spontaneous
  Country: AU (occurrence: AU)
  Receive Date: 20250212
  Receipt Date: 20250213
  Transmission Date: 20250409
  Serious: Yes (Hospitalization, Other)
  Sender: PFIZER
  Company Number: AU-MLMSERVICE-20250130-PI385265-00050-1

PATIENT
  Age: 8 Year
  Sex: Male

DRUGS (5)
  1. THYMOCYTE IMMUNE GLOBULIN NOS [Suspect]
     Active Substance: THYMOCYTE IMMUNE GLOBULIN NOS
     Indication: Aplastic anaemia
     Dosage: 40 MG/KG/DOSE ON DAYS 1-5
     Route: 042
     Dates: start: 202101, end: 202101
  2. AMLODIPINE [Suspect]
     Active Substance: AMLODIPINE BESYLATE
     Dosage: 5 MG, 1X/DAY
     Route: 048
     Dates: start: 202101, end: 202302
  3. CYCLOSPORINE [Suspect]
     Active Substance: CYCLOSPORINE
     Indication: Aplastic anaemia
     Route: 048
     Dates: start: 202101, end: 202306
  4. ELTROMBOPAG [Concomitant]
     Active Substance: ELTROMBOPAG
     Dosage: FROM DAY 1 TO +13MONTHS
     Route: 048
     Dates: start: 202101, end: 2022
  5. PENTAMIDINE [Concomitant]
     Active Substance: PENTAMIDINE
     Indication: Antifungal prophylaxis
     Dates: start: 202101, end: 202304

REACTIONS (3)
  - Gingival hypertrophy [Recovering/Resolving]
  - Tooth dislocation [Recovering/Resolving]
  - Gingival bleeding [Recovering/Resolving]

NARRATIVE: CASE EVENT DATE: 20220101
